FAERS Safety Report 5321980-6 (Version None)
Quarter: 2007Q2

REPORT INFORMATION
  Report Type: 
  Country: None (occurrence: None)
  Receive Date: 20070511
  Receipt Date: 20070502
  Transmission Date: 20071010
  Serious: Yes (Hospitalization)
  Sender: FDA-Public Use
  Company Number: PHRM2007FR01298

PATIENT
  Age: 27 Year
  Sex: Female
  Weight: 65 kg

DRUGS (4)
  1. EFFEXOR [Concomitant]
     Indication: DEPRESSIVE SYMPTOM
     Dosage: 75 MG, BID
     Route: 048
     Dates: start: 20070109
  2. CLOZAPINE [Suspect]
     Indication: PSYCHOTIC DISORDER
     Dosage: 125 MG/DAY
     Route: 048
     Dates: start: 20070109, end: 20070416
  3. CLOZAPINE [Suspect]
     Dosage: 500 MG, ONCE/SINGLE
     Route: 048
     Dates: start: 20070417, end: 20070417
  4. CLOZAPINE [Suspect]
     Dosage: 125 MG/D
     Route: 048
     Dates: start: 20070419

REACTIONS (4)
  - HYPERKALAEMIA [None]
  - INCORRECT DOSE ADMINISTERED [None]
  - METABOLIC ACIDOSIS [None]
  - PROTEIN TOTAL INCREASED [None]
